FAERS Safety Report 6912140-3 (Version None)
Quarter: 2010Q3

REPORT INFORMATION
  Report Type: 
  Country: None (occurrence: None)
  Receive Date: 20100806
  Receipt Date: 20071204
  Transmission Date: 20110219
  Serious: No
  Sender: FDA-Public Use
  Company Number: US-PFIZER INC-2007102959

PATIENT
  Sex: Male
  Weight: 72.7 kg

DRUGS (3)
  1. DILANTIN [Suspect]
     Indication: CONVULSION
  2. ZARONTIN [Concomitant]
  3. PHENOBARBITAL [Concomitant]

REACTIONS (1)
  - ABNORMAL BEHAVIOUR [None]
